FAERS Safety Report 10710924 (Version 5)
Quarter: 2015Q1

REPORT INFORMATION
  Report Type: Spontaneous
  Country: US (occurrence: US)
  Receive Date: 20150114
  Receipt Date: 20150305
  Transmission Date: 20150721
  Serious: Yes (Hospitalization)
  Sender: FDA-Public Use
  Company Number: US-UNITED THERAPEUTICS-UNT-2014-012557

PATIENT
  Age: 59 Year
  Sex: Female
  Weight: 60.77 kg

DRUGS (4)
  1. TYVASO [Suspect]
     Active Substance: TREPROSTINIL
     Indication: PULMONARY ARTERIAL HYPERTENSION
     Dosage: 72-108 ?G, QID
     Dates: start: 20130731
  2. TYVASO [Suspect]
     Active Substance: TREPROSTINIL
     Indication: PULMONARY HYPERTENSION
     Dosage: 72-108 ?G, QID
     Dates: start: 20130729
  3. OPSUMIT [Concomitant]
     Active Substance: MACITENTAN
     Indication: PRODUCT USED FOR UNKNOWN INDICATION
  4. TYVASO [Suspect]
     Active Substance: TREPROSTINIL
     Indication: COR PULMONALE CHRONIC
     Dosage: 72-108 ?G, QID

REACTIONS (6)
  - Systemic lupus erythematosus [Unknown]
  - Cardiac failure congestive [Unknown]
  - Oedema [Unknown]
  - Blood test abnormal [Unknown]
  - Pneumonia bacterial [Unknown]
  - Therapy cessation [Unknown]

NARRATIVE: CASE EVENT DATE: 20141207
